FAERS Safety Report 5731322-X (Version None)
Quarter: 2008Q2

REPORT INFORMATION
  Report Type: 
  Country: None (occurrence: None)
  Receive Date: 20080506
  Receipt Date: 20080429
  Transmission Date: 20081010
  Serious: Yes (Other)
  Sender: FDA-Public Use
  Company Number: 2008010854

PATIENT
  Sex: Male

DRUGS (2)
  1. COOL MINT LISTERINE (MENTHOL METHYL SALICYLATE, EUCALYPTOL, THYMOL) [Suspect]
     Indication: DENTAL DISORDER PROPHYLAXIS
     Dosage: RECOMMENDED DOSE TWICE DAILY,ORAL
     Route: 048
  2. LIPITOR [Concomitant]

REACTIONS (5)
  - INCORRECT DRUG ADMINISTRATION DURATION [None]
  - ORAL DISCOMFORT [None]
  - ORAL PAIN [None]
  - OROPHARYNGEAL BLISTERING [None]
  - SKIN EXFOLIATION [None]
